FAERS Safety Report 16898544 (Version 3)
Quarter: 2020Q2

REPORT INFORMATION
  Report Type: Report from Study
  Country: US (occurrence: US)
  Receive Date: 20191009
  Receipt Date: 20200502
  Transmission Date: 20200713
  Serious: Yes (Hospitalization, Other)
  Sender: FDA-Public Use
  Company Number: US-ROCHE-2397661

PATIENT
  Age: 56 Year
  Sex: Female
  Weight: 75.82 kg

DRUGS (7)
  1. LAMICTAL [Concomitant]
     Active Substance: LAMOTRIGINE
     Indication: ANXIETY
     Route: 048
     Dates: start: 2005
  2. FLONASE [Concomitant]
     Active Substance: FLUTICASONE PROPIONATE
     Indication: HYPERSENSITIVITY
  3. ABILIFY [Concomitant]
     Active Substance: ARIPIPRAZOLE
     Route: 048
     Dates: start: 2005
  4. OCREVUS [Suspect]
     Active Substance: OCRELIZUMAB
     Indication: RELAPSING MULTIPLE SCLEROSIS
     Route: 065
     Dates: start: 20190211
  5. LORAZEPAM. [Concomitant]
     Active Substance: LORAZEPAM
     Dosage: AS NEEDED, WHEN SHE CANNOT SLEEP ;ONGOING: YES
     Route: 048
     Dates: start: 2014
  6. AMFETAMINE ASPARTATE;AMFETAMINE SULFATE;DEXAMFETAMINE SACCHARATE;DEXAM [Concomitant]
     Route: 048
     Dates: start: 201904
  7. FLONASE [Concomitant]
     Active Substance: FLUTICASONE PROPIONATE
     Indication: HYPERSENSITIVITY
     Dosage: USES ONLY WHEN NEEDED, NOT USED IN A LONG TIME ;ONGOING: YES
     Route: 065
     Dates: start: 2016

REACTIONS (4)
  - Fatigue [Unknown]
  - Lyme disease [Unknown]
  - Dislocation of vertebra [Unknown]
  - Memory impairment [Unknown]

NARRATIVE: CASE EVENT DATE: 201906
